FAERS Safety Report 6445073-X (Version None)
Quarter: 2009Q4

REPORT INFORMATION
  Report Type: 
  Country: None (occurrence: None)
  Receive Date: 20091118
  Receipt Date: 20091029
  Transmission Date: 20100525
  Serious: Yes (Other)
  Sender: FDA-Public Use
  Company Number: SE-WYE-H12169609

PATIENT
  Age: 64 Year
  Sex: Male

DRUGS (4)
  1. CORDARONE [Suspect]
     Indication: ATRIAL FIBRILLATION
     Route: 048
     Dates: start: 20070908, end: 20071127
  2. WARAN [Concomitant]
  3. COZAAR [Concomitant]
  4. RAMIPRIL [Concomitant]

REACTIONS (1)
  - INTRACRANIAL PRESSURE INCREASED [None]
